FAERS Safety Report 25623645 (Version 2)
Quarter: 2025Q3

REPORT INFORMATION
  Report Type: Spontaneous
  Country: CN (occurrence: CN)
  Receive Date: 20250730
  Receipt Date: 20250916
  Transmission Date: 20251020
  Serious: Yes (Other)
  Sender: MEDEXUS PHARMA
  Company Number: CN-MEDEXUS PHARMA, INC.-2025MED00222

PATIENT
  Age: 60 Year
  Sex: Female

DRUGS (5)
  1. METHOTREXATE [Suspect]
     Active Substance: METHOTREXATE
     Indication: Rheumatoid arthritis
     Dates: start: 201510
  2. LEFLUNOMIDE [Concomitant]
     Active Substance: LEFLUNOMIDE
     Indication: Rheumatoid arthritis
     Dates: start: 201510
  3. INFLIXIMAB [Concomitant]
     Active Substance: INFLIXIMAB
     Indication: Rheumatoid arthritis
     Dates: end: 201902
  4. Recombinant human tumor necrosis factor receptor-II [Concomitant]
     Indication: Rheumatoid arthritis
  5. Iguratimodum [Concomitant]
     Indication: Rheumatoid arthritis

REACTIONS (1)
  - Actinomycosis [Recovered/Resolved]

NARRATIVE: CASE EVENT DATE: 20190201
